FAERS Safety Report 4842482-7 (Version None)
Quarter: 2005Q4

REPORT INFORMATION
  Report Type: 
  Country: None (occurrence: None)
  Receive Date: 20051201
  Receipt Date: 20051018
  Transmission Date: 20060501
  Serious: Yes (Life-Threatening, Hospitalization)
  Sender: FDA-Public Use
  Company Number: 200518096US

PATIENT
  Age: 77 Year
  Sex: Female

DRUGS (1)
  1. TAXOTERE [Suspect]
     Dates: start: 20051001, end: 20051001

REACTIONS (10)
  - AKINESIA [None]
  - ASTHENIA [None]
  - DEPRESSED LEVEL OF CONSCIOUSNESS [None]
  - ENCEPHALOPATHY [None]
  - FLUID RETENTION [None]
  - MENTAL IMPAIRMENT [None]
  - OEDEMA [None]
  - PERIPHERAL MOTOR NEUROPATHY [None]
  - RENAL FAILURE [None]
  - SPEECH DISORDER [None]
